FAERS Safety Report 24120937 (Version 1)
Quarter: 2024Q3

REPORT INFORMATION
  Report Type: Report from Study
  Country: NL (occurrence: NL)
  Receive Date: 20240722
  Receipt Date: 20240722
  Transmission Date: 20241016
  Serious: Yes (Hospitalization)
  Sender: ABBVIE
  Company Number: NL-ABBVIE-5846115

PATIENT
  Sex: Male

DRUGS (8)
  1. CARBIDOPA\LEVODOPA [Suspect]
     Active Substance: CARBIDOPA\LEVODOPA
     Indication: Parkinson^s disease
     Dosage: DURATION TEXT: REMAINS AT 16 HOURS
     Route: 050
     Dates: start: 20220328
  2. CARBIDOPA\LEVODOPA [Suspect]
     Active Substance: CARBIDOPA\LEVODOPA
     Dosage: MD: 9.5 ML, CD: 3.6ML/H, ED:1.0ML
     Route: 050
     Dates: start: 20240624, end: 20240716
  3. CARBIDOPA\LEVODOPA [Suspect]
     Active Substance: CARBIDOPA\LEVODOPA
     Dosage: MD: 9.5 ML, CD: 3.6ML/H, ED:1.0ML
     Route: 050
     Dates: start: 20240304, end: 20240624
  4. CARBIDOPA\LEVODOPA [Suspect]
     Active Substance: CARBIDOPA\LEVODOPA
     Dosage: MD: 9.5 ML, CD: 3.6ML/H, ED:1.0ML
     Route: 050
     Dates: start: 20240716
  5. LEVODOPA/CARBIDOPA PCH RETARD [Concomitant]
     Indication: Product used for unknown indication
     Dosage: FORM STRENGTH: 125 MILLIGRAM
     Dates: start: 20170925
  6. STALEVO [Concomitant]
     Active Substance: CARBIDOPA\ENTACAPONE\LEVODOPA
     Indication: Product used for unknown indication
     Dates: start: 20190708, end: 20220328
  7. RIVASTIGMINE [Concomitant]
     Active Substance: RIVASTIGMINE
     Indication: Hallucination
  8. POLYETHYLENE GLYCOLS [Concomitant]
     Active Substance: POLYETHYLENE GLYCOLS
     Indication: Gastrointestinal motility disorder

REACTIONS (10)
  - Rehabilitation therapy [Not Recovered/Not Resolved]
  - Hallucination, visual [Not Recovered/Not Resolved]
  - Wheelchair user [Not Recovered/Not Resolved]
  - Hypophagia [Not Recovered/Not Resolved]
  - Loss of personal independence in daily activities [Not Recovered/Not Resolved]
  - Dementia [Not Recovered/Not Resolved]
  - Memory impairment [Not Recovered/Not Resolved]
  - Gait inability [Not Recovered/Not Resolved]
  - Weight decreased [Not Recovered/Not Resolved]
  - Immobile [Not Recovered/Not Resolved]
